FAERS Safety Report 10038550 (Version 1)
Quarter: 2014Q1

REPORT INFORMATION
  Report Type: Spontaneous
  Country: US (occurrence: US)
  Receive Date: 20140326
  Receipt Date: 20140326
  Transmission Date: 20141002
  Serious: Yes (Other)
  Sender: FDA-Public Use
  Company Number: US-BEH-2014041118

PATIENT
  Age: 43 Year
  Sex: Female

DRUGS (1)
  1. BERINERT [Suspect]

REACTIONS (1)
  - Swelling [Unknown]
